FAERS Safety Report 9638716 (Version 2)
Quarter: 2013Q4

REPORT INFORMATION
  Report Type: Spontaneous
  Country: US (occurrence: US)
  Receive Date: 20131022
  Receipt Date: 20131030
  Transmission Date: 20140711
  Serious: Yes (Other)
  Sender: FDA-Public Use
  Company Number: US-PURDUE-USA-2013-0107675

PATIENT
  Age: 55 Year
  Sex: Male

DRUGS (5)
  1. OXYCONTIN (NDA 22-272) [Suspect]
     Indication: PAIN
     Dosage: 60 MG, QID
     Route: 048
     Dates: end: 20131007
  2. OXYCONTIN (NDA 22-272) [Suspect]
     Dosage: 60 MG, BID
     Route: 048
     Dates: start: 20131007, end: 20131021
  3. LISINOPRIL [Concomitant]
     Indication: BLOOD PRESSURE
     Dosage: 2.5 MG, DAILY
     Route: 048
  4. SPIRONOLACTONE [Concomitant]
     Indication: FLUID RETENTION
     Dosage: 25 MG, DAILY
     Route: 048
  5. FUROSEMIDE [Concomitant]
     Indication: FLUID RETENTION
     Dosage: 20 MG, DAILY
     Route: 048

REACTIONS (4)
  - Suicidal ideation [Unknown]
  - Convulsion [Recovered/Resolved]
  - Pain [Not Recovered/Not Resolved]
  - General physical health deterioration [Unknown]
